FAERS Safety Report 7892784-5 (Version None)
Quarter: 2011Q4

REPORT INFORMATION
  Report Type: 
  Country: None (occurrence: None)
  Receive Date: 20111104
  Receipt Date: 20111101
  Transmission Date: 20120403
  Serious: No
  Sender: FDA-Public Use
  Company Number: US-BAYER-2011-106663

PATIENT
  Age: 53 Year
  Sex: Female

DRUGS (1)
  1. ULTRAVIST 150 [Suspect]
     Indication: COMPUTERISED TOMOGRAM
     Dosage: 300MG/ML, RIGHT ANTICUBITAL
     Route: 042
     Dates: start: 20111101

REACTIONS (2)
  - ORAL PRURITUS [None]
  - SNEEZING [None]
